FAERS Safety Report 24969689 (Version 2)
Quarter: 2025Q4

REPORT INFORMATION
  Report Type: Report from Study
  Country: EU (occurrence: EU)
  Receive Date: 20250214
  Receipt Date: 20251121
  Transmission Date: 20260117
  Serious: Yes (Other)
  Sender: ACCORD
  Company Number: EU-Accord-469733

PATIENT
  Sex: Male

DRUGS (2)
  1. AZACITIDINE [Suspect]
     Active Substance: AZACITIDINE
     Indication: VEXAS syndrome
     Dosage: 9 CYCLES
  2. PREDNISONE [Concomitant]
     Active Substance: PREDNISONE
     Dosage: DAILY DOSES OF MORE THAN OR EQUALS TO 25 MG

REACTIONS (8)
  - Neutropenia [Unknown]
  - Device related infection [Recovered/Resolved]
  - Bacterial infection [Recovered/Resolved]
  - Escherichia bacteraemia [Unknown]
  - Oral herpes [Recovered/Resolved]
  - Herpes simplex reactivation [Recovered/Resolved]
  - COVID-19 [Recovered/Resolved]
  - Off label use [Unknown]
